FAERS Safety Report 8988083 (Version 1)
Quarter: 2012Q4

REPORT INFORMATION
  Report Type: Report from Study
  Country: DE (occurrence: DE)
  Receive Date: 20121227
  Receipt Date: 20121227
  Transmission Date: 20130627
  Serious: Yes (Hospitalization)
  Sender: FDA-Public Use
  Company Number: DE-TEVA-377643USA

PATIENT
  Age: 77 Year
  Sex: Male
  Weight: 70 kg

DRUGS (13)
  1. TREANDA [Suspect]
     Indication: CHRONIC LYMPHOCYTIC LEUKAEMIA
     Route: 042
     Dates: start: 20070705
  2. TREANDA [Suspect]
     Route: 042
     Dates: start: 20070802, end: 20070925
  3. RITUXIMAB [Suspect]
     Indication: CHRONIC LYMPHOCYTIC LEUKAEMIA
     Route: 042
     Dates: start: 20070704
  4. RITUXIMAB [Suspect]
     Route: 042
     Dates: start: 20070802, end: 20070927
  5. CONCOR [Concomitant]
  6. L-THYROXIN [Concomitant]
  7. COTRIM FORTE [Concomitant]
  8. FRAXIPARIN [Concomitant]
  9. LOCOL [Concomitant]
  10. GABAPENTIN [Concomitant]
  11. ALNA [Concomitant]
  12. ALLOPURINOL [Concomitant]
  13. TAVANIC [Concomitant]
     Dates: end: 20070813

REACTIONS (4)
  - Pyrexia [Recovered/Resolved]
  - Chills [Recovered/Resolved]
  - Disturbance in attention [Recovered/Resolved]
  - Atrial fibrillation [Recovered/Resolved]
